FAERS Safety Report 7961485-7 (Version None)
Quarter: 2011Q4

REPORT INFORMATION
  Report Type: 
  Country: None (occurrence: None)
  Receive Date: 20111202
  Receipt Date: 20111123
  Transmission Date: 20120403
  Serious: Yes (Other)
  Sender: FDA-Public Use
  Company Number: 2011MA016952

PATIENT
  Sex: Male

DRUGS (1)
  1. GEMCITABINE HYDROCHLORIDE [Suspect]
     Dosage: 2000 MG;IV
     Route: 042

REACTIONS (3)
  - VISION BLURRED [None]
  - ANAPHYLACTIC REACTION [None]
  - PRESYNCOPE [None]
